FAERS Safety Report 8772298 (Version 5)
Quarter: 2014Q1

REPORT INFORMATION
  Report Type: Spontaneous
  Country: US (occurrence: US)
  Receive Date: 20120906
  Receipt Date: 20140113
  Transmission Date: 20141002
  Serious: No
  Sender: FDA-Public Use
  Company Number: US-BIOGENIDEC-2012BI033045

PATIENT
  Sex: Male

DRUGS (4)
  1. AVONEX [Suspect]
     Indication: MULTIPLE SCLEROSIS
     Route: 030
     Dates: start: 20050401, end: 201208
  2. AVONEX [Suspect]
     Indication: MULTIPLE SCLEROSIS
     Route: 030
     Dates: start: 201208
  3. ALEVE [Concomitant]
     Indication: DRUG THERAPY
  4. ASPIRIN [Concomitant]
     Indication: DRUG THERAPY

REACTIONS (9)
  - Insomnia [Not Recovered/Not Resolved]
  - Blindness [Recovered/Resolved]
  - Gait disturbance [Recovered/Resolved]
  - Urinary incontinence [Recovered/Resolved]
  - Hypercoagulation [Not Recovered/Not Resolved]
  - Eating disorder [Not Recovered/Not Resolved]
  - Memory impairment [Not Recovered/Not Resolved]
  - Increased upper airway secretion [Not Recovered/Not Resolved]
  - Initial insomnia [Recovered/Resolved]
